FAERS Safety Report 9551415 (Version 1)
Quarter: 2013Q3

REPORT INFORMATION
  Report Type: Spontaneous
  Country: US (occurrence: None)
  Receive Date: 20130724
  Receipt Date: 20130724
  Transmission Date: 20140515
  Serious: Yes (Hospitalization)
  Sender: FDA-Public Use
  Company Number: PHEH2012US011257

PATIENT
  Sex: Male

DRUGS (1)
  1. GLEEVEC (IMATINIB) TABLET 400MG [Suspect]
     Indication: LEUKAEMIA

REACTIONS (2)
  - Pyrexia [None]
  - Nausea [None]
